FAERS Safety Report 10340410 (Version 1)
Quarter: 2014Q3

REPORT INFORMATION
  Report Type: Spontaneous
  Country: US (occurrence: US)
  Receive Date: 20140724
  Receipt Date: 20140724
  Transmission Date: 20150326
  Serious: No
  Sender: FDA-Public Use
  Company Number: US-ALLERGAN-1312122US

PATIENT
  Age: 67 Year
  Sex: Female

DRUGS (1)
  1. TROSPIUM CHLORIDE UNK [Suspect]
     Active Substance: TROSPIUM CHLORIDE
     Indication: MICTURITION URGENCY
     Dosage: 60 MG, UNK

REACTIONS (2)
  - Constipation [Unknown]
  - Dry mouth [Unknown]
